FAERS Safety Report 9074736 (Version 1)
Quarter: 2013Q1

REPORT INFORMATION
  Report Type: Report from Study
  Country: US (occurrence: US)
  Receive Date: 20130129
  Receipt Date: 20130129
  Transmission Date: 20140127
  Serious: No
  Sender: FDA-Public Use
  Company Number: US-ABBOTT-12P-163-0934513-00

PATIENT
  Sex: Female
  Weight: 95.34 kg

DRUGS (12)
  1. HUMIRA 40 MG/0.8 ML PEN [Suspect]
     Indication: RHEUMATOID ARTHRITIS
     Route: 058
  2. HUMIRA 40 MG/0.8 ML PEN [Suspect]
     Route: 058
     Dates: start: 201103, end: 201112
  3. HUMIRA 40 MG/0.8 ML PEN [Suspect]
     Route: 058
     Dates: start: 201112
  4. DICYCLOMINE [Concomitant]
     Indication: IRRITABLE BOWEL SYNDROME
  5. CYCLOBENZAPRINE [Concomitant]
     Indication: TEMPOROMANDIBULAR JOINT SYNDROME
  6. MELOXICAM [Concomitant]
     Indication: PAIN
  7. OMEPRAZOLE [Concomitant]
     Indication: GASTROOESOPHAGEAL REFLUX DISEASE
  8. GABAPENTIN [Concomitant]
     Indication: FIBROMYALGIA
  9. HYDROCODONE [Concomitant]
     Indication: PAIN
  10. SUMATRIPTAN [Concomitant]
     Indication: MIGRAINE
  11. ZOLPIDEM [Concomitant]
     Indication: INSOMNIA
  12. REMICAID [Concomitant]
     Indication: PRODUCT USED FOR UNKNOWN INDICATION

REACTIONS (3)
  - Drug ineffective [Unknown]
  - Rheumatoid arthritis [Not Recovered/Not Resolved]
  - Urinary tract infection [Not Recovered/Not Resolved]
